FAERS Safety Report 16033736 (Version 1)
Quarter: 2019Q1

REPORT INFORMATION
  Report Type: Spontaneous
  Country: BE (occurrence: BE)
  Receive Date: 20190305
  Receipt Date: 20190305
  Transmission Date: 20190418
  Serious: Yes (Other)
  Sender: FDA-Public Use
  Company Number: BE-AUROBINDO-AUR-APL-2019-002773

PATIENT

DRUGS (4)
  1. VESICARE [Concomitant]
     Active Substance: SOLIFENACIN SUCCINATE
     Indication: HYPERREFLEXIA
     Dosage: 5 MILLIGRAM, ONCE A DAY, 5 MG, QD
     Route: 048
  2. MAGNESIUM [Concomitant]
     Active Substance: MAGNESIUM
     Indication: MUSCLE SPASMS
     Dosage: UNK
     Route: 065
     Dates: start: 20130823
  3. AMOXICILLIN+CLAVULANIC ACID [Suspect]
     Active Substance: AMOXICILLIN\CLAVULANIC ACID
     Indication: PRODUCT USED FOR UNKNOWN INDICATION
     Dosage: UNK
     Route: 065
  4. GILENYA [Suspect]
     Active Substance: FINGOLIMOD HYDROCHLORIDE
     Indication: MULTIPLE SCLEROSIS
     Dosage: 0.5 MILLIGRAM, ONCE A DAY,0.5 MG, QD
     Route: 048
     Dates: start: 20120521, end: 201505

REACTIONS (22)
  - Lacrimation increased [Recovered/Resolved]
  - Neutrophil count increased [Unknown]
  - Back pain [Recovered/Resolved]
  - Nasopharyngitis [Recovered/Resolved]
  - Low density lipoprotein increased [Unknown]
  - Arthralgia [Recovered/Resolved]
  - Alopecia [Recovered/Resolved]
  - Dry eye [Recovered/Resolved]
  - Periarthritis [Unknown]
  - White blood cell count decreased [Unknown]
  - Alanine aminotransferase increased [Unknown]
  - Hair growth abnormal [Recovered/Resolved]
  - Urinary tract infection [Recovered/Resolved]
  - Cystitis [Unknown]
  - Asthenia [Unknown]
  - Musculoskeletal pain [Unknown]
  - Gamma-glutamyltransferase increased [Unknown]
  - Lymphocyte count decreased [Unknown]
  - Sinusitis [Unknown]
  - Blood cholesterol increased [Unknown]
  - Exertional headache [Unknown]
  - Diarrhoea [Unknown]

NARRATIVE: CASE EVENT DATE: 20120604
